FAERS Safety Report 9767771 (Version 1)
Quarter: 2013Q4

REPORT INFORMATION
  Report Type: Spontaneous
  Country: US (occurrence: None)
  Receive Date: 20131213
  Receipt Date: 20131213
  Transmission Date: 20140711
  Serious: Yes (Other)
  Sender: FDA-Public Use
  Company Number: AUR-APL-2013-09215

PATIENT
  Age: 57 Year
  Sex: Male

DRUGS (4)
  1. LAMOTRIGINE [Suspect]
     Indication: AFFECTIVE DISORDER
  2. CITALOPRAM(CITALOPRAM) [Suspect]
     Indication: AFFECTIVE DISORDER
  3. TRAZODONE (TRAZODONE) [Suspect]
     Indication: AFFECTIVE DISORDER
  4. BUPROPION [Suspect]
     Indication: AFFECTIVE DISORDER

REACTIONS (7)
  - Dystonia [None]
  - Pain in jaw [None]
  - Joint stiffness [None]
  - Torticollis [None]
  - Musculoskeletal stiffness [None]
  - Glossodynia [None]
  - Drug interaction [None]
